FAERS Safety Report 4385396-1 (Version None)
Quarter: 2004Q2

REPORT INFORMATION
  Report Type: 
  Country: None (occurrence: None)
  Receive Date: 20040628
  Receipt Date: 20040623
  Transmission Date: 20050107
  Serious: Yes (Hospitalization)
  Sender: FDA-Public Use
  Company Number: 200411406DE

PATIENT
  Age: 64 Year
  Sex: Female
  Weight: 73 kg

DRUGS (5)
  1. DOCETAXEL [Suspect]
     Indication: OVARIAN CANCER
     Route: 042
     Dates: start: 20040427, end: 20040427
  2. DECORTIN [Concomitant]
     Indication: CHRONIC OBSTRUCTIVE AIRWAYS DISEASE
     Dosage: DOSE: 1-0-0
     Route: 048
  3. PANTOZOL [Concomitant]
     Indication: PROPHYLAXIS
     Dosage: DOSE: 0-0-40
     Route: 048
  4. ANAFRANIL [Concomitant]
     Indication: DEPRESSION
     Dosage: DOSE: 25-0-0
     Route: 048
  5. EUTHYROX [Concomitant]
     Indication: HYPOTHYROIDISM
     Dosage: DOSE: 50-0-0
     Route: 048

REACTIONS (4)
  - HYDROPNEUMOTHORAX [None]
  - PLEURAL EFFUSION [None]
  - SUBILEUS [None]
  - URINARY RETENTION [None]
